FAERS Safety Report 26113949 (Version 1)
Quarter: 2025Q4

REPORT INFORMATION
  Report Type: Spontaneous
  Country: US (occurrence: US)
  Receive Date: 20251202
  Receipt Date: 20251202
  Transmission Date: 20260117
  Serious: Yes (Life-Threatening, Hospitalization, Other)
  Sender: PFIZER
  Company Number: US-PFIZER INC-202500230909

PATIENT
  Age: 41 Year
  Sex: Male

DRUGS (4)
  1. LEVOTHYROXINE SODIUM [Suspect]
     Active Substance: LEVOTHYROXINE SODIUM
     Indication: Accidental exposure to product
     Dosage: 50 MCG OF LT4 ON DAYS 1-3
  2. LEVOTHYROXINE SODIUM [Suspect]
     Active Substance: LEVOTHYROXINE SODIUM
     Dosage: 100 MCG OF LT4 ON DAY 4
  3. LIOTHYRONINE SODIUM [Suspect]
     Active Substance: LIOTHYRONINE SODIUM
     Indication: Accidental exposure to product
     Dosage: 50 MCG ON DAY 1-3, OVER THE COURSE OF 4 DAYS
  4. LIOTHYRONINE SODIUM [Suspect]
     Active Substance: LIOTHYRONINE SODIUM
     Dosage: 50 MCG ON DAY 4, OVER THE COURSE OF 4 DAYS

REACTIONS (2)
  - Hyperthyroidism [Unknown]
  - Troponin increased [Unknown]
